FAERS Safety Report 22603997 (Version 1)
Quarter: 2023Q2

REPORT INFORMATION
  Report Type: Spontaneous
  Country: BR (occurrence: BR)
  Receive Date: 20230615
  Receipt Date: 20230615
  Transmission Date: 20230721
  Serious: Yes (Other)
  Sender: FDA-Public Use
  Company Number: BR-STRIDES ARCOLAB LIMITED-2023SP009478

PATIENT
  Age: 14 Year
  Sex: Female

DRUGS (2)
  1. AMOXICILLIN [Suspect]
     Active Substance: AMOXICILLIN
     Indication: Cystitis bacterial
     Dosage: UNK
     Route: 065
  2. CLAVULANATE POTASSIUM [Suspect]
     Active Substance: CLAVULANATE POTASSIUM
     Indication: Cystitis bacterial
     Dosage: UNK
     Route: 065

REACTIONS (2)
  - Ulcerative keratitis [Unknown]
  - Dermatitis allergic [Unknown]
